FAERS Safety Report 5763585-9 (Version None)
Quarter: 2008Q2

REPORT INFORMATION
  Report Type: 
  Country: None (occurrence: None)
  Receive Date: 20080610
  Receipt Date: 20080530
  Transmission Date: 20081010
  Serious: Yes (Other)
  Sender: FDA-Public Use
  Company Number: PHHY2008JP08728

PATIENT
  Age: 46 Year
  Sex: Male
  Weight: 86 kg

DRUGS (6)
  1. DIOVAN [Suspect]
     Indication: HYPERTENSION
     Dosage: 80 MG TWICE DAILY
     Route: 048
     Dates: start: 20070927, end: 20080519
  2. EPADEL [Suspect]
     Indication: HYPERLIPIDAEMIA
     Dosage: 1200 MG
     Route: 048
     Dates: start: 20070706, end: 20071101
  3. EPADEL [Suspect]
     Dosage: 1200 MG
     Route: 048
     Dates: start: 20071214, end: 20080519
  4. CRESTOR [Concomitant]
     Indication: HYPERLIPIDAEMIA
     Dosage: 25 MG
     Route: 048
     Dates: start: 20070601, end: 20070705
  5. NORVASC [Concomitant]
     Indication: HYPERTENSION
     Dosage: UNK
     Route: 048
     Dates: start: 20070601, end: 20070926
  6. ZETIA [Concomitant]
     Indication: HYPERLIPIDAEMIA
     Dosage: UNK
     Route: 048
     Dates: start: 20071102, end: 20071130

REACTIONS (3)
  - BLOOD CREATINE PHOSPHOKINASE INCREASED [None]
  - PAIN IN EXTREMITY [None]
  - RHABDOMYOLYSIS [None]
